FAERS Safety Report 9841338 (Version 1)
Quarter: 2013Q4

REPORT INFORMATION
  Report Type: Spontaneous
  Country: BR (occurrence: None)
  Receive Date: 20131211
  Receipt Date: 20131211
  Transmission Date: 20140711
  Serious: Yes (Other)
  Sender: FDA-Public Use
  Company Number: SPV1-2009-00500

PATIENT
  Age: 4 Year
  Sex: Male
  Weight: 22 kg

DRUGS (1)
  1. ELAPRASE [Suspect]
     Indication: MUCOPOLYSACCHARIDOSIS II
     Route: 041
     Dates: start: 20080826

REACTIONS (6)
  - Hypertension [None]
  - Infusion related reaction [None]
  - Tremor [None]
  - Tachycardia [None]
  - Headache [None]
  - Peripheral ischaemia [None]
